FAERS Safety Report 25401715 (Version 2)
Quarter: 2025Q3

REPORT INFORMATION
  Report Type: Report from Study
  Country: CA (occurrence: CA)
  Receive Date: 20250605
  Receipt Date: 20250702
  Transmission Date: 20251020
  Serious: Yes (Hospitalization, Other)
  Sender: TAKEDA
  Company Number: CA-TAKEDA-2025TUS049892

PATIENT
  Age: 102 Year
  Sex: Female

DRUGS (17)
  1. VEDOLIZUMAB [Suspect]
     Active Substance: VEDOLIZUMAB
     Indication: Colitis ulcerative
  2. VEDOLIZUMAB [Suspect]
     Active Substance: VEDOLIZUMAB
     Dosage: 300 MILLIGRAM, Q6WEEKS
     Dates: start: 20190605
  3. VEDOLIZUMAB [Suspect]
     Active Substance: VEDOLIZUMAB
     Dosage: 300 MILLIGRAM, Q5WEEKS
     Dates: start: 20220720
  4. VEDOLIZUMAB [Suspect]
     Active Substance: VEDOLIZUMAB
     Dosage: 300 MILLIGRAM, Q4WEEKS
     Dates: start: 20240403
  5. VEDOLIZUMAB [Suspect]
     Active Substance: VEDOLIZUMAB
     Dosage: 300 MILLIGRAM, Q4WEEKS
  6. VEDOLIZUMAB [Suspect]
     Active Substance: VEDOLIZUMAB
     Dosage: 300 MILLIGRAM, Q4WEEKS
  7. ACETAMINOPHEN [Concomitant]
     Active Substance: ACETAMINOPHEN
  8. BISOPROLOL [Concomitant]
     Active Substance: BISOPROLOL
  9. FOLIC ACID [Concomitant]
     Active Substance: FOLIC ACID
  10. ASPIRIN [Concomitant]
     Active Substance: ASPIRIN
  11. RANITIDINE [Concomitant]
     Active Substance: RANITIDINE
  12. LASIX [Concomitant]
     Active Substance: FUROSEMIDE
  13. OMEPRAZOLE [Concomitant]
     Active Substance: OMEPRAZOLE
  14. RAMIPRIL [Concomitant]
     Active Substance: RAMIPRIL
  15. VITAMIN D [Concomitant]
     Active Substance: VITAMIN D NOS
  16. METOPROLOL [Concomitant]
     Active Substance: METOPROLOL
  17. SENOKOT [Concomitant]
     Active Substance: SENNOSIDES

REACTIONS (8)
  - Pleural effusion [Unknown]
  - Dehydration [Unknown]
  - Lower respiratory tract infection [Unknown]
  - Cystitis [Unknown]
  - Pneumonia [Unknown]
  - Off label use [Unknown]
  - Abdominal discomfort [Unknown]
  - Asthenia [Recovering/Resolving]

NARRATIVE: CASE EVENT DATE: 20240403
